FAERS Safety Report 14746342 (Version 3)
Quarter: 2018Q2

REPORT INFORMATION
  Report Type: Spontaneous
  Country: US (occurrence: US)
  Receive Date: 20180411
  Receipt Date: 20180427
  Transmission Date: 20180711
  Serious: Yes (Hospitalization, Other)
  Sender: FDA-Public Use
  Company Number: US-APOTEX-2018AP010062

PATIENT
  Age: 27 Year
  Sex: Female

DRUGS (1)
  1. ACETAMINOPHEN. [Suspect]
     Active Substance: ACETAMINOPHEN
     Indication: TOOTHACHE
     Dosage: APPROXIMATELY 12.5 G OVER 24 HOURS
     Route: 065

REACTIONS (8)
  - Toxicity to various agents [Unknown]
  - Premature delivery [Unknown]
  - Exposure during pregnancy [Unknown]
  - International normalised ratio increased [Recovering/Resolving]
  - Premature separation of placenta [Unknown]
  - Alanine aminotransferase increased [Recovering/Resolving]
  - Aspartate aminotransferase increased [Recovering/Resolving]
  - Accidental overdose [Unknown]
